FAERS Safety Report 21285968 (Version 1)
Quarter: 2022Q3

REPORT INFORMATION
  Report Type: Spontaneous
  Country: US (occurrence: None)
  Receive Date: 20220901
  Receipt Date: 20220901
  Transmission Date: 20221026
  Serious: No
  Sender: FDA-Public Use
  Company Number: None

PATIENT
  Age: 22 Year
  Sex: Male
  Weight: 81 kg

DRUGS (1)
  1. TRAMADOL [Suspect]
     Active Substance: TRAMADOL
     Indication: Procedural pain
     Dosage: OTHER QUANTITY : 30 TABLET(S);?FREQUENCY : EVERY 6 HOURS;?
     Route: 048

REACTIONS (4)
  - Alopecia [None]
  - Madarosis [None]
  - Alopecia [None]
  - Therapy cessation [None]
